FAERS Safety Report 9299048 (Version 1)
Quarter: 2013Q2

REPORT INFORMATION
  Report Type: Spontaneous
  Country: US (occurrence: US)
  Receive Date: 20130520
  Receipt Date: 20130520
  Transmission Date: 20140414
  Serious: No
  Sender: FDA-Public Use
  Company Number: US-BAYER-2013-062003

PATIENT
  Age: 36 Year
  Sex: Female
  Weight: 51 kg

DRUGS (2)
  1. ALEVE TABLET [Suspect]
     Dosage: 1 DF, UNK
  2. ALBUTEROL INHALER [Concomitant]

REACTIONS (2)
  - Feeling abnormal [None]
  - Somnolence [None]
